FAERS Safety Report 15277097 (Version 1)
Quarter: 2018Q3

REPORT INFORMATION
  Report Type: Spontaneous
  Country: US (occurrence: US)
  Receive Date: 20180729
  Receipt Date: 20180729
  Transmission Date: 20181010
  Serious: Yes (Disabling)
  Sender: FDA-Public Use
  Company Number: None

PATIENT
  Age: 65 Year
  Sex: Female
  Weight: 50.4 kg

DRUGS (12)
  1. LEVOTHYROXINE. [Concomitant]
     Active Substance: LEVOTHYROXINE
  2. CHOLESTYRAMINE. [Concomitant]
     Active Substance: CHOLESTYRAMINE
  3. L?LYSINE [Concomitant]
     Active Substance: LYSINE
  4. SUPER B COMPLEX W/VITAMIN C [Concomitant]
  5. CENTRUM SILVER VITAMINS [Concomitant]
  6. ALKALINE BALANCE [Concomitant]
  7. CALCIUM/MAGNESIUM [Concomitant]
     Active Substance: CALCIUM\MAGNESIUM
  8. GINGER CAPSULES [Concomitant]
  9. AMOXICILLIN. [Suspect]
     Active Substance: AMOXICILLIN
     Indication: OROPHARYNGEAL PAIN
     Dosage: ?          QUANTITY:1 CAPSULE(S);?
     Route: 048
     Dates: start: 20180302, end: 20180305
  10. GLUCOSAMINE [Concomitant]
     Active Substance: GLUCOSAMINE
  11. LISINOPRIL. [Concomitant]
     Active Substance: LISINOPRIL
  12. CHONDROITIN [Concomitant]
     Active Substance: CHONDROITIN

REACTIONS (6)
  - Housebound [None]
  - Cognitive disorder [None]
  - Diarrhoea [None]
  - Fatigue [None]
  - Clostridium difficile infection [None]
  - Rectal injury [None]

NARRATIVE: CASE EVENT DATE: 20180302
